FAERS Safety Report 5714646-1 (Version None)
Quarter: 2008Q2

REPORT INFORMATION
  Report Type: 
  Country: None (occurrence: None)
  Receive Date: 20080423
  Receipt Date: 20080417
  Transmission Date: 20081010
  Serious: Yes (Hospitalization)
  Sender: FDA-Public Use
  Company Number: D0057004A

PATIENT
  Sex: Female

DRUGS (2)
  1. LAPATINIB [Suspect]
     Route: 048
  2. XELODA [Suspect]
     Route: 048

REACTIONS (2)
  - DIARRHOEA [None]
  - SWELLING [None]
